FAERS Safety Report 11285521 (Version 1)
Quarter: 2015Q3

REPORT INFORMATION
  Report Type: Other
  Country: US (occurrence: US)
  Receive Date: 20150720
  Receipt Date: 20150720
  Transmission Date: 20151125
  Serious: Yes (Hospitalization)
  Sender: FDA-Public Use
  Company Number: US-ENDO PHARMACEUTICALS INC-2015-001844

PATIENT
  Age: 14 Year
  Sex: Female

DRUGS (5)
  1. OXCARBAZEPINE. [Suspect]
     Active Substance: OXCARBAZEPINE
     Indication: SUICIDE ATTEMPT
     Route: 065
  2. OMEPRAZOLE. [Suspect]
     Active Substance: OMEPRAZOLE
     Indication: SUICIDE ATTEMPT
     Route: 065
  3. DOXYCYCLINE HYCLATE 100MG [Suspect]
     Active Substance: DOXYCYCLINE HYCLATE
     Indication: SUICIDE ATTEMPT
     Route: 065
  4. CITALOPRAM [Suspect]
     Active Substance: CITALOPRAM HYDROBROMIDE
     Indication: SUICIDE ATTEMPT
     Route: 065
  5. MELATONIN [Suspect]
     Active Substance: MELATONIN
     Indication: SUICIDE ATTEMPT
     Route: 065

REACTIONS (5)
  - Suicide attempt [Recovered/Resolved]
  - Mechanical ventilation [Recovered/Resolved]
  - Mental status changes [Unknown]
  - Intentional overdose [Recovered/Resolved]
  - Vomiting [Unknown]
